FAERS Safety Report 20632987 (Version 1)
Quarter: 2022Q1

REPORT INFORMATION
  Report Type: Spontaneous
  Country: US (occurrence: US)
  Receive Date: 20220324
  Receipt Date: 20220324
  Transmission Date: 20220424
  Serious: No
  Sender: FDA-Public Use
  Company Number: US-UPSHER-SMITH LABORATORIES, LLC-2021USL00564

PATIENT
  Age: 82 Year
  Sex: Male

DRUGS (2)
  1. PREVALITE [Suspect]
     Active Substance: CHOLESTYRAMINE
     Indication: Diarrhoea
     Dosage: 1 DOSAGE UNITS, 2X/DAY WITH MEALS (BREAKFAST AND SUPPER)
     Dates: end: 20210811
  2. UNSPECIFIED MEDICATIONS ^A BUNCH^ [Concomitant]

REACTIONS (1)
  - Vertigo [Not Recovered/Not Resolved]

NARRATIVE: CASE EVENT DATE: 20210812
